FAERS Safety Report 18014347 (Version 2)
Quarter: 2020Q3

REPORT INFORMATION
  Report Type: Spontaneous
  Country: SE (occurrence: SE)
  Receive Date: 20200713
  Receipt Date: 20200720
  Transmission Date: 20201103
  Serious: Yes (Hospitalization, Other)
  Sender: FDA-Public Use
  Company Number: SE-PFIZER INC-2020265801

PATIENT
  Age: 42 Year
  Sex: Male

DRUGS (7)
  1. ONDANSETRON [Concomitant]
     Active Substance: ONDANSETRON
     Dosage: UNK
  2. CYTARABINE. [Suspect]
     Active Substance: CYTARABINE
     Indication: PRECURSOR T-LYMPHOBLASTIC LYMPHOMA/LEUKAEMIA
     Dosage: UNK (DOSAGE 4000 X 2)
     Route: 042
     Dates: start: 20200530, end: 20200531
  3. VINCRISTINE SULFATE. [Suspect]
     Active Substance: VINCRISTINE SULFATE
     Indication: PRECURSOR T-LYMPHOBLASTIC LYMPHOMA/LEUKAEMIA
     Dosage: 2 MG
     Route: 042
     Dates: start: 20200526
  4. PURINETHOL [Concomitant]
     Active Substance: MERCAPTOPURINE
     Dosage: UNK
  5. METHOTREXATE SODIUM. [Suspect]
     Active Substance: METHOTREXATE SODIUM
     Indication: PRECURSOR T-LYMPHOBLASTIC LYMPHOMA/LEUKAEMIA
     Dosage: UNK (DOSAGE 1000)
     Route: 042
     Dates: start: 20200526
  6. DEXAMETHASONE. [Suspect]
     Active Substance: DEXAMETHASONE
     Indication: PRECURSOR T-LYMPHOBLASTIC LYMPHOMA/LEUKAEMIA
     Dosage: 3 (UNSPECIFIED UNIT) 1X/DAY (DOSAGE 16+16+8)
     Route: 048
     Dates: start: 20200526, end: 20200530
  7. PEGASPARGASE [Concomitant]
     Active Substance: PEGASPARGASE
     Dosage: UNK

REACTIONS (2)
  - Gastric ulcer [Not Recovered/Not Resolved]
  - Gastrointestinal injury [Not Recovered/Not Resolved]

NARRATIVE: CASE EVENT DATE: 202006
